FAERS Safety Report 10974203 (Version 1)
Quarter: 2015Q1

REPORT INFORMATION
  Report Type: Spontaneous
  Country: US (occurrence: None)
  Receive Date: 20150331
  Receipt Date: 20150331
  Transmission Date: 20150721
  Serious: No
  Sender: FDA-Public Use
  Company Number: None

PATIENT
  Age: 69 Year
  Sex: Male
  Weight: 98.5 kg

DRUGS (3)
  1. CODEINE/GUAIFENESIN [Suspect]
     Active Substance: CODEINE\GUAIFENESIN
     Route: 048
     Dates: start: 20150310, end: 20150311
  2. AMOXICILLIN/CLAVULANATE [Suspect]
     Active Substance: AMOXICILLIN\CLAVULANATE POTASSIUM
     Route: 048
     Dates: start: 20150310, end: 20150311
  3. LEVOFLOXACIN. [Suspect]
     Active Substance: LEVOFLOXACIN
     Route: 048

REACTIONS (3)
  - Angioedema [None]
  - Face oedema [None]
  - Lip swelling [None]

NARRATIVE: CASE EVENT DATE: 20150311
